FAERS Safety Report 5159240-9 (Version None)
Quarter: 2006Q4

REPORT INFORMATION
  Report Type: 
  Country: None (occurrence: None)
  Receive Date: 20061120
  Receipt Date: 20061107
  Transmission Date: 20070319
  Serious: Yes (Other)
  Sender: FDA-Public Use
  Company Number: S06-CAN-04850-01

PATIENT
  Age: 45 Year
  Sex: Male

DRUGS (1)
  1. CIPRALEX (ESCITALOPRAM) [Suspect]

REACTIONS (2)
  - ATRIOVENTRICULAR BLOCK SECOND DEGREE [None]
  - LOSS OF CONSCIOUSNESS [None]
